FAERS Safety Report 9819161 (Version 3)
Quarter: 2014Q1

REPORT INFORMATION
  Report Type: Spontaneous
  Country: US (occurrence: US)
  Receive Date: 20140115
  Receipt Date: 20140331
  Transmission Date: 20141002
  Serious: Yes (Hospitalization, Other)
  Sender: FDA-Public Use
  Company Number: US-FRI-1000052843

PATIENT
  Age: 81 Year
  Sex: Female

DRUGS (3)
  1. LINZESS [Suspect]
     Indication: CONSTIPATION
     Dosage: 145 MCG
     Route: 048
     Dates: start: 201312, end: 201401
  2. COREG [Concomitant]
  3. ANTICOAGULANT NOS [Concomitant]
     Indication: ANTICOAGULANT THERAPY

REACTIONS (2)
  - Transient ischaemic attack [Recovered/Resolved]
  - Headache [Recovered/Resolved]
